FAERS Safety Report 5416571-2 (Version None)
Quarter: 2007Q3

REPORT INFORMATION
  Report Type: 
  Country: None (occurrence: None)
  Receive Date: 20070814
  Receipt Date: 20070814
  Transmission Date: 20080115
  Serious: No
  Sender: FDA-Public Use
  Company Number: None

PATIENT
  Age: 47 Year
  Sex: Female
  Weight: 86.1834 kg

DRUGS (2)
  1. ZOLOFT [Suspect]
     Indication: AGITATION
     Dosage: 100 MG ONCE A DAY PO
     Route: 048
     Dates: start: 20060228, end: 20070811
  2. ZOLOFT [Suspect]
     Indication: DEPRESSION
     Dosage: 100 MG ONCE A DAY PO
     Route: 048
     Dates: start: 20060228, end: 20070811

REACTIONS (13)
  - AGITATION [None]
  - ANTISOCIAL BEHAVIOUR [None]
  - ASTHENIA [None]
  - CONDITION AGGRAVATED [None]
  - FEELING ABNORMAL [None]
  - HOSTILITY [None]
  - HUNGER [None]
  - HYPERSOMNIA [None]
  - INSOMNIA [None]
  - LETHARGY [None]
  - SEXUAL DYSFUNCTION [None]
  - VARICOSE VEIN [None]
  - WEIGHT INCREASED [None]
